FAERS Safety Report 18801218 (Version 1)
Quarter: 2021Q1

REPORT INFORMATION
  Report Type: Spontaneous
  Country: MX (occurrence: MX)
  Receive Date: 20210128
  Receipt Date: 20210128
  Transmission Date: 20210419
  Serious: Yes (Other)
  Sender: FDA-Public Use
  Company Number: MX-BIOMARINAP-MX-2021-134687

PATIENT
  Age: 12 Year
  Sex: Male

DRUGS (1)
  1. VIMIZIM [Suspect]
     Active Substance: ELOSULFASE ALFA
     Indication: MUCOPOLYSACCHARIDOSIS IV
     Dosage: UNK
     Route: 065
     Dates: start: 20200629

REACTIONS (3)
  - Ocular hyperaemia [Unknown]
  - Vomiting [Unknown]
  - Respiratory distress [Unknown]

NARRATIVE: CASE EVENT DATE: 20210122
